FAERS Safety Report 6179939-5 (Version None)
Quarter: 2009Q2

REPORT INFORMATION
  Report Type: 
  Country: None (occurrence: None)
  Receive Date: 20090505
  Receipt Date: 20090429
  Transmission Date: 20091009
  Serious: Yes (Life-Threatening, Other)
  Sender: FDA-Public Use
  Company Number: PHHY2009CA16736

PATIENT
  Sex: Female

DRUGS (1)
  1. ACLASTA [Suspect]
     Indication: OSTEOPOROSIS
     Dosage: UNK
     Dates: start: 20080520

REACTIONS (4)
  - ARTHRALGIA [None]
  - BEDRIDDEN [None]
  - FEELING ABNORMAL [None]
  - PAIN IN EXTREMITY [None]
